FAERS Safety Report 4690521-9 (Version None)
Quarter: 2005Q2

REPORT INFORMATION
  Report Type: 
  Country: None (occurrence: None)
  Receive Date: 20050615
  Receipt Date: 20050520
  Transmission Date: 20051028
  Serious: Yes (Hospitalization, Other)
  Sender: FDA-Public Use
  Company Number: US-MERCK-0505USA02485

PATIENT
  Age: 79 Year
  Sex: Female
  Weight: 65 kg

DRUGS (16)
  1. VIOXX [Suspect]
     Indication: ARTHRITIS
     Route: 048
     Dates: start: 19990831, end: 20040930
  2. VIOXX [Suspect]
     Route: 048
     Dates: start: 19990831, end: 20040930
  3. VIOXX [Suspect]
     Indication: OSTEOARTHRITIS
     Route: 048
     Dates: start: 19990831, end: 20040930
  4. VIOXX [Suspect]
     Route: 048
     Dates: start: 19990831, end: 20040930
  5. COUMADIN [Concomitant]
     Route: 065
  6. ATACAND HCT [Concomitant]
     Route: 065
  7. LASIX [Concomitant]
     Route: 065
  8. SINGULAIR [Concomitant]
     Route: 048
  9. MUCINEX [Concomitant]
     Route: 065
  10. FOSAMAX [Concomitant]
     Route: 048
  11. RESTORIL [Concomitant]
     Route: 065
  12. CITRACAL [Concomitant]
     Route: 065
  13. PROTONIX [Concomitant]
     Route: 065
  14. ADVAIR [Concomitant]
     Route: 065
  15. SOTALOL HYDROCHLORIDE [Concomitant]
     Route: 065
  16. VITAMINS (UNSPECIFIED) [Concomitant]
     Route: 065

REACTIONS (1)
  - ATRIAL FIBRILLATION [None]
